FAERS Safety Report 4866838-1 (Version None)
Quarter: 2005Q4

REPORT INFORMATION
  Report Type: 
  Country: None (occurrence: None)
  Receive Date: 20051222
  Receipt Date: 20051207
  Transmission Date: 20060501
  Serious: Yes (Death)
  Sender: FDA-Public Use
  Company Number: 2004-01019

PATIENT
  Age: 61 Year
  Sex: Female
  Weight: 80 kg

DRUGS (10)
  1. VELCADE [Suspect]
     Indication: MULTIPLE MYELOMA
     Dosage: 1.30 MG/M2, INTRAVENOUS
     Route: 042
     Dates: start: 20040601, end: 20040806
  2. CLODRONATE DISODIUM               (CLODRONATE DISODIUM) [Concomitant]
  3. DOTHIEPIN HYDROCHLORIDE [Concomitant]
  4. BENDROFLUAZIDE (BENDROFLUMETHIAZIDE) [Concomitant]
  5. CANDESARTAN (CANDESARTAN) [Concomitant]
  6. GLYBURIDE [Concomitant]
  7. PANTOPRAZOLE SODIUM [Concomitant]
  8. BISOPROLOL (BISOPROLOL) [Concomitant]
  9. ASPIRIN [Concomitant]
  10. MORPHINE SULFATE [Concomitant]

REACTIONS (2)
  - MALIGNANT NEOPLASM PROGRESSION [None]
  - MULTIPLE MYELOMA [None]
